FAERS Safety Report 5033886-0 (Version None)
Quarter: 2006Q2

REPORT INFORMATION
  Report Type: 
  Country: None (occurrence: None)
  Receive Date: 20060623
  Receipt Date: 20060329
  Transmission Date: 20061013
  Serious: Yes (Other)
  Sender: FDA-Public Use
  Company Number: FR-GILEAD-2006-0009390

PATIENT
  Sex: Male

DRUGS (3)
  1. VIREAD [Suspect]
     Indication: HIV INFECTION
     Route: 048
     Dates: start: 20021219, end: 20060317
  2. EFAVIRENZ [Suspect]
     Indication: HIV INFECTION
     Route: 048
     Dates: start: 20010105, end: 20050113
  3. LAMIVUDINE [Concomitant]
     Route: 048
     Dates: start: 20010101, end: 20060317

REACTIONS (2)
  - NIGHTMARE [None]
  - SLEEP DISORDER [None]
